FAERS Safety Report 16751286 (Version 14)
Quarter: 2022Q1

REPORT INFORMATION
  Report Type: Report from Study
  Country: US (occurrence: US)
  Receive Date: 20190828
  Receipt Date: 20220325
  Transmission Date: 20220423
  Serious: Yes (Death, Life-Threatening, Hospitalization, Other)
  Sender: FDA-Public Use
  Company Number: US-NOVARTISPH-PHEH2019US035468

PATIENT
  Age: 66 Year
  Sex: Female
  Weight: 75.283 kg

DRUGS (9)
  1. TREPROSTINIL [Suspect]
     Active Substance: TREPROSTINIL
     Indication: Pulmonary arterial hypertension
     Dosage: 40 NG/KG/MIN, CONT (STRENGTH 2.5 MG/ML)
     Route: 042
     Dates: start: 20190624
  2. TREPROSTINIL [Suspect]
     Active Substance: TREPROSTINIL
     Dosage: 60 NG/KG/MIN, CONT (STRENGTH 2.5 MG/ML)
     Route: 042
  3. TREPROSTINIL [Suspect]
     Active Substance: TREPROSTINIL
     Dosage: 60 NG/KG/MIN, CONT (STRENGTH 2.5 MG/ML)
     Route: 042
  4. TREPROSTINIL [Suspect]
     Active Substance: TREPROSTINIL
     Dosage: 67 NG/KG/MIN, CONT (STRENGTH 2.5 MG/ML)
     Route: 042
  5. TREPROSTINIL [Suspect]
     Active Substance: TREPROSTINIL
     Dosage: 80 NG/KG/MIN, CONT (STRENGTH 1MG/ML),
     Route: 042
  6. REMODULIN [Suspect]
     Active Substance: TREPROSTINIL
     Indication: Product used for unknown indication
     Dosage: UNK
     Route: 065
  7. OPSUMIT [Suspect]
     Active Substance: MACITENTAN
     Indication: Product used for unknown indication
     Dosage: UNK
     Route: 065
  8. SILDENAFIL CITRATE [Concomitant]
     Active Substance: SILDENAFIL CITRATE
     Indication: Product used for unknown indication
     Dosage: UNK
     Route: 065
  9. AMLODIPINE [Concomitant]
     Active Substance: AMLODIPINE BESYLATE
     Indication: Product used for unknown indication
     Dosage: 40 (UNITS NOT SPECIFIED), TID
     Route: 065

REACTIONS (14)
  - Renal failure [Fatal]
  - Right ventricular failure [Fatal]
  - COVID-19 [Fatal]
  - Pyrexia [Fatal]
  - Dyspnoea [Fatal]
  - Unresponsive to stimuli [Unknown]
  - Infection [Unknown]
  - Thrombosis in device [Unknown]
  - Respiratory failure [Unknown]
  - Nasal congestion [Unknown]
  - Skin abrasion [Unknown]
  - Skin irritation [Unknown]
  - Dermatitis contact [Unknown]
  - Aphonia [Unknown]

NARRATIVE: CASE EVENT DATE: 20220201
